FAERS Safety Report 7542750-4 (Version None)
Quarter: 2011Q2

REPORT INFORMATION
  Report Type: 
  Country: None (occurrence: None)
  Receive Date: 20110613
  Receipt Date: 20110608
  Transmission Date: 20111010
  Serious: Yes (Other)
  Sender: FDA-Public Use
  Company Number: A0930682A

PATIENT
  Sex: Female

DRUGS (4)
  1. ADVAIR DISKUS 100/50 [Suspect]
     Indication: ASTHMA
     Dosage: 2PUFF TWICE PER DAY
     Route: 055
     Dates: start: 20030101
  2. CLONAZEPAM [Concomitant]
  3. OXYGEN THERAPY [Concomitant]
     Dates: start: 20091101
  4. PAIN MEDICATIONS [Concomitant]

REACTIONS (2)
  - PNEUMONIA [None]
  - LUNG INFECTION [None]
